FAERS Safety Report 8872173 (Version 1)
Quarter: 2012Q4

REPORT INFORMATION
  Report Type: Spontaneous
  Country: US (occurrence: None)
  Receive Date: 20121026
  Receipt Date: 20121026
  Transmission Date: 20130627
  Serious: No
  Sender: FDA-Public Use
  Company Number: None

PATIENT
  Age: 60 Year
  Sex: Male
  Weight: 74.7 kg

DRUGS (1)
  1. VANCOMYCIN [Suspect]
     Dosage: 125mg/5ml ML QID PO
     Route: 048
     Dates: start: 20120927, end: 20121008

REACTIONS (3)
  - Neutropenia [None]
  - Agranulocytosis [None]
  - White blood cell count decreased [None]
